FAERS Safety Report 15367645 (Version 3)
Quarter: 2018Q3

REPORT INFORMATION
  Report Type: Spontaneous
  Country: CA (occurrence: CA)
  Receive Date: 20180910
  Receipt Date: 20180917
  Transmission Date: 20181010
  Serious: Yes (Hospitalization, Other)
  Sender: FDA-Public Use
  Company Number: CA-PFIZER INC-2018104268

PATIENT
  Age: 44 Year
  Sex: Male

DRUGS (12)
  1. RAPAMUNE [Suspect]
     Active Substance: SIROLIMUS
     Dosage: UNK
  2. ANAKINRA [Suspect]
     Active Substance: ANAKINRA
     Indication: IMMUNOSUPPRESSION
     Dosage: 100 MG, UNK
  3. ALEMTUZUMAB [Suspect]
     Active Substance: ALEMTUZUMAB
     Indication: IMMUNOSUPPRESSION
     Dosage: UNK
     Route: 042
  4. MYCOPHENOLATE MOFETIL. [Suspect]
     Active Substance: MYCOPHENOLATE MOFETIL
     Indication: TRANSPLANT
     Dosage: 1 G, 2X/DAY
  5. SIROLIMUS. [Suspect]
     Active Substance: SIROLIMUS
     Indication: TRANSPLANT
     Dosage: UNK
  6. TACROLIMUS. [Suspect]
     Active Substance: TACROLIMUS
     Indication: IMMUNOSUPPRESSION
     Dosage: UNK
  7. SIROLIMUS. [Suspect]
     Active Substance: SIROLIMUS
     Indication: IMMUNOSUPPRESSION
  8. TACROLIMUS. [Suspect]
     Active Substance: TACROLIMUS
     Indication: TRANSPLANT
  9. ENBREL [Suspect]
     Active Substance: ETANERCEPT
     Indication: TRANSPLANT
  10. ANAKINRA [Suspect]
     Active Substance: ANAKINRA
     Indication: TRANSPLANT
  11. MYCOPHENOLATE MOFETIL. [Suspect]
     Active Substance: MYCOPHENOLATE MOFETIL
     Indication: IMMUNOSUPPRESSION
  12. ENBREL [Suspect]
     Active Substance: ETANERCEPT
     Indication: IMMUNOSUPPRESSION
     Dosage: 50 MG, UNK

REACTIONS (19)
  - Weight decreased [Recovered/Resolved]
  - Abdominal pain [Recovered/Resolved]
  - Diarrhoea haemorrhagic [Recovered/Resolved]
  - Headache [Recovered/Resolved]
  - Central nervous system lymphoma [Recovered/Resolved]
  - Transplant failure [Recovered/Resolved]
  - Post transplant lymphoproliferative disorder [Recovered/Resolved]
  - Acute kidney injury [Recovered/Resolved]
  - Propionibacterium infection [Recovered/Resolved]
  - Stem cell transplant [Recovered/Resolved]
  - Gait disturbance [Recovered/Resolved]
  - Vertigo [Recovered/Resolved]
  - Diffuse large B-cell lymphoma [Recovered/Resolved]
  - Meningitis viral [Recovered/Resolved]
  - Diplopia [Recovered/Resolved]
  - Enteritis [Recovered/Resolved]
  - Febrile neutropenia [Recovered/Resolved]
  - Product use in unapproved indication [Recovered/Resolved]
  - Sepsis [Recovered/Resolved]
